FAERS Safety Report 10189365 (Version 2)
Quarter: 2014Q2

REPORT INFORMATION
  Report Type: Spontaneous
  Country: US (occurrence: US)
  Receive Date: 20140522
  Receipt Date: 20140522
  Transmission Date: 20141212
  Serious: No
  Sender: FDA-Public Use
  Company Number: US-BAXTER-2013BAX024207

PATIENT
  Age: 75 Year
  Sex: Male

DRUGS (3)
  1. GAMMAGARD LIQUID [Suspect]
     Indication: PARANEOPLASTIC NEUROLOGICAL SYNDROME
     Route: 042
     Dates: start: 201207, end: 201207
  2. GAMMAGARD LIQUID [Suspect]
     Indication: OFF LABEL USE
  3. CARTIA [Concomitant]
     Indication: PRODUCT USED FOR UNKNOWN INDICATION

REACTIONS (4)
  - Hypersensitivity [Recovering/Resolving]
  - Rash erythematous [Recovering/Resolving]
  - Swelling [Recovering/Resolving]
  - Hyperkeratosis [Recovering/Resolving]
